FAERS Safety Report 19959290 (Version 1)
Quarter: 2021Q4

REPORT INFORMATION
  Report Type: Spontaneous
  Country: US (occurrence: US)
  Receive Date: 20211014
  Receipt Date: 20211014
  Transmission Date: 20220303
  Serious: No
  Sender: FDA-Public Use
  Company Number: None

PATIENT
  Age: 23 Year
  Sex: Female
  Weight: 62 kg

DRUGS (2)
  1. JYNARQUE [Suspect]
     Active Substance: TOLVAPTAN
  2. JYNARQUE [Concomitant]
     Active Substance: TOLVAPTAN
     Dates: start: 20211003

REACTIONS (2)
  - Alanine aminotransferase increased [None]
  - Blood bilirubin increased [None]

NARRATIVE: CASE EVENT DATE: 20210806
